FAERS Safety Report 6675189-4 (Version None)
Quarter: 2010Q2

REPORT INFORMATION
  Report Type: 
  Country: None (occurrence: None)
  Receive Date: 20100409
  Receipt Date: 20100330
  Transmission Date: 20101027
  Serious: Yes (Other)
  Sender: FDA-Public Use
  Company Number: US-PFIZER INC-2010041048

PATIENT
  Sex: Male

DRUGS (2)
  1. ATORVASTATIN CALCIUM [Suspect]
     Dosage: UNK
     Route: 065
  2. FENOFIBRIC ACID [Suspect]
     Indication: HYPERLIPIDAEMIA
     Dosage: 135 MG, 1X/DAY
     Route: 048
     Dates: start: 20090820, end: 20091217

REACTIONS (3)
  - BLOOD CREATINE PHOSPHOKINASE INCREASED [None]
  - MYALGIA [None]
  - POLYMYOSITIS [None]
